FAERS Safety Report 23491930 (Version 1)
Quarter: 2024Q1

REPORT INFORMATION
  Report Type: Spontaneous
  Country: GB (occurrence: GB)
  Receive Date: 20240207
  Receipt Date: 20240207
  Transmission Date: 20240410
  Serious: Yes (Hospitalization)
  Sender: FDA-Public Use
  Company Number: None

PATIENT
  Age: 21 Year
  Sex: Female
  Weight: 59 kg

DRUGS (12)
  1. IBUPROFEN [Suspect]
     Active Substance: IBUPROFEN
     Indication: Product used for unknown indication
     Dosage: UNK (TABLET)
     Route: 065
  2. UNSPECIFIED INGREDIENT [Concomitant]
     Active Substance: UNSPECIFIED INGREDIENT
     Indication: Product used for unknown indication
     Dosage: UNK (USE AS DIRECTED - EMOLLIENT TO BODY)
     Route: 065
     Dates: start: 20220516, end: 20240104
  3. Cetraben emollient cream [Concomitant]
     Indication: Product used for unknown indication
     Dosage: UNK, PRN (APPLY WHEN REQUIRED - AS EMOLLIENT TO FACE)
     Route: 065
     Dates: start: 20230925, end: 20240104
  4. ELOCON [Concomitant]
     Active Substance: MOMETASONE FUROATE
     Indication: Product used for unknown indication
     Dosage: 1 DOSAGE FORM, QD (APPLY THINLY FOR 2 WEEKS DURING SEVE)
     Route: 061
     Dates: start: 20230925, end: 20240104
  5. FERROUS FUMARATE [Concomitant]
     Active Substance: FERROUS FUMARATE
     Indication: Product used for unknown indication
     Dosage: 2 DOSAGE FORM, QD (FOR 3 MONTH COURSE)
     Route: 065
     Dates: start: 20210225, end: 20240104
  6. FEXOFENADINE [Concomitant]
     Active Substance: FEXOFENADINE HYDROCHLORIDE
     Indication: Product used for unknown indication
     Dosage: 1 DOSAGE FORM, QD
     Route: 065
     Dates: start: 20230227, end: 20240104
  7. HYALURONATE SODIUM [Concomitant]
     Active Substance: HYALURONATE SODIUM
     Indication: Product used for unknown indication
     Dosage: 1 DROP ( IN THE AFFECTED EYE(S) EVERY THREE)
     Route: 065
     Dates: start: 20230227, end: 20240104
  8. PROTOPIC [Concomitant]
     Active Substance: TACROLIMUS
     Indication: Eczema
     Dosage: 2 DOSAGE FORM, QD (APPLY THINLY WHEN ECZEMA SEVERE AND)
     Route: 061
     Dates: start: 20230925, end: 20240104
  9. NEUTROGENA TGEL THERAPEUTIC [Concomitant]
     Active Substance: COAL TAR
     Indication: Product used for unknown indication
     Dosage: UNK (TO BE USED ONCE OR TWICE A WEEK AS DIRECTED)
     Route: 065
     Dates: start: 20210225, end: 20240104
  10. TRANEXAMIC ACID [Concomitant]
     Active Substance: TRANEXAMIC ACID
     Indication: Product used for unknown indication
     Dosage: 3 GRAM, QD ((TWO TABLETS) AS LONG AS)
     Route: 065
     Dates: start: 20210225, end: 20240104
  11. NORETHINDRONE [Concomitant]
     Active Substance: NORETHINDRONE
     Indication: Product used for unknown indication
     Dosage: 15 MILLIGRAM, QD (TO BE STARTED 3 DAYS BEFORE EXPECTED O)
     Route: 065
     Dates: start: 20240109
  12. Zeroderma emollient medicinal bath [Concomitant]
     Indication: Product used for unknown indication
     Dosage: UNK (USE AS DIRECTED)
     Route: 065
     Dates: start: 20210319, end: 20240104

REACTIONS (3)
  - Swelling [Recovered/Resolved]
  - Pain [Unknown]
  - Hypersensitivity [Unknown]
